FAERS Safety Report 12643851 (Version 12)
Quarter: 2020Q3

REPORT INFORMATION
  Report Type: Spontaneous
  Country: CA (occurrence: CA)
  Receive Date: 20160811
  Receipt Date: 20200708
  Transmission Date: 20201102
  Serious: Yes (Other)
  Sender: FDA-Public Use
  Company Number: CA-PFIZER INC-2016368442

PATIENT
  Age: 77 Year
  Sex: Male

DRUGS (11)
  1. ENBREL [Suspect]
     Active Substance: ETANERCEPT
     Indication: RHEUMATOID ARTHRITIS
     Dosage: UNK
     Route: 058
  2. ORENCIA [Suspect]
     Active Substance: ABATACEPT
     Dosage: UNK
     Route: 065
  3. METHOTREXATE SODIUM. [Suspect]
     Active Substance: METHOTREXATE SODIUM
     Indication: RHEUMATOID ARTHRITIS
     Dosage: 15 MG, QWK FOR FOUR MONTHS
     Route: 065
     Dates: start: 201309, end: 201312
  4. METHOTREXATE SODIUM. [Suspect]
     Active Substance: METHOTREXATE SODIUM
     Indication: RHEUMATOID ARTHRITIS
     Dosage: 15 MG, QWK
     Route: 065
  5. ARAVA [Suspect]
     Active Substance: LEFLUNOMIDE
     Dosage: 20 MG, QD
     Route: 065
     Dates: start: 1990, end: 201509
  6. GOLD [Suspect]
     Active Substance: GOLD
     Dosage: UNK
     Route: 065
     Dates: start: 1980
  7. RITUXIMAB. [Suspect]
     Active Substance: RITUXIMAB
     Dosage: UNK
     Route: 041
  8. APO?LEFLUNOMIDE [Suspect]
     Active Substance: LEFLUNOMIDE
     Dosage: 20 MG, QD
     Route: 065
     Dates: start: 1990, end: 201509
  9. SULFASALAZINE. [Suspect]
     Active Substance: SULFASALAZINE
     Indication: RHEUMATOID ARTHRITIS
     Dosage: 1 G, BID, FOR FOUR MONTHS
     Route: 065
     Dates: start: 201402, end: 201405
  10. RITUXAN [Suspect]
     Active Substance: RITUXIMAB
     Dosage: UNK
     Route: 042
     Dates: end: 201601
  11. LEFLUNOMIDE. [Suspect]
     Active Substance: LEFLUNOMIDE
     Dosage: 20 MILLIGRAM
     Route: 065

REACTIONS (17)
  - Arthropathy [Unknown]
  - Drug ineffective [Unknown]
  - Intentional product use issue [Unknown]
  - Hand deformity [Unknown]
  - Off label use [Unknown]
  - Joint range of motion decreased [Unknown]
  - Arthralgia [Unknown]
  - Swelling [Unknown]
  - Liver function test increased [Unknown]
  - Mobility decreased [Unknown]
  - Pain [Unknown]
  - Musculoskeletal pain [Unknown]
  - Osteoarthritis [Unknown]
  - Back pain [Unknown]
  - Feeling hot [Unknown]
  - Renal failure [Unknown]
  - Contraindicated product administered [Unknown]
